FAERS Safety Report 4625514-0 (Version None)
Quarter: 2005Q2

REPORT INFORMATION
  Report Type: 
  Country: None (occurrence: None)
  Receive Date: 20050401
  Receipt Date: 20050311
  Transmission Date: 20051028
  Serious: Yes (Other)
  Sender: FDA-Public Use
  Company Number: US-ABBOTT-05P-163-0294324-00

PATIENT
  Sex: Female

DRUGS (2)
  1. VICODIN [Suspect]
     Indication: LIMB INJURY
     Route: 048
     Dates: start: 20040101, end: 20050101
  2. VICODIN [Suspect]
     Indication: PAIN

REACTIONS (2)
  - HYPERSENSITIVITY [None]
  - LYMPHADENOPATHY [None]
